FAERS Safety Report 9337054 (Version 1)
Quarter: 2013Q2

REPORT INFORMATION
  Report Type: Report from Study
  Country: US (occurrence: US)
  Receive Date: 20130607
  Receipt Date: 20130607
  Transmission Date: 20140414
  Serious: Yes (Hospitalization)
  Sender: FDA-Public Use
  Company Number: US-EISAI INC-E3810-06475-SOL-US

PATIENT
  Age: 58 Year
  Sex: Male

DRUGS (1)
  1. ACIPHEX (RABEPRAZOLE) [Suspect]
     Route: 048

REACTIONS (1)
  - Pulmonary sepsis [Recovered/Resolved]
